FAERS Safety Report 9450112 (Version 1)
Quarter: 2013Q3

REPORT INFORMATION
  Report Type: Spontaneous
  Country: DE (occurrence: DE)
  Receive Date: 20130809
  Receipt Date: 20130809
  Transmission Date: 20140515
  Serious: Yes (Hospitalization, Other)
  Sender: FDA-Public Use
  Company Number: DE-PFIZER INC-2013227163

PATIENT
  Age: 1 Day
  Sex: Male
  Weight: 2.38 kg

DRUGS (2)
  1. LYRICA [Suspect]
     Indication: EPILEPSY
     Dosage: 300 MG, 2X/DAY
     Route: 064
     Dates: start: 20071228, end: 20080904
  2. LISKANTIN [Suspect]
     Indication: EPILEPSY
     Dosage: 250 MG, 5 X DAILY
     Route: 064
     Dates: start: 20071228, end: 20080904

REACTIONS (6)
  - Maternal exposure timing unspecified [Recovered/Resolved]
  - Premature baby [Recovered/Resolved]
  - Hyperbilirubinaemia neonatal [Recovered/Resolved]
  - Feeding disorder neonatal [Recovered/Resolved]
  - Hypertonia neonatal [Recovered/Resolved]
  - Agitation neonatal [Recovering/Resolving]
